FAERS Safety Report 8248741-2 (Version None)
Quarter: 2012Q1

REPORT INFORMATION
  Report Type: 
  Country: None (occurrence: None)
  Receive Date: 20120331
  Receipt Date: 20120326
  Transmission Date: 20120608
  Serious: Yes (Other)
  Sender: FDA-Public Use
  Company Number: PHHY2012JP022981

PATIENT
  Age: 6 Year
  Sex: Female

DRUGS (5)
  1. VALPROIC ACID [Suspect]
     Indication: EPILEPSY
  2. CARBAMAZEPINE [Suspect]
     Indication: EPILEPSY
     Dosage: UNK UKN, UNK
     Route: 048
  3. TOPIRAMATE [Suspect]
     Indication: EPILEPSY
  4. LAMOTRGINE [Suspect]
     Indication: EPILEPSY
  5. CLOBAZAM [Suspect]
     Indication: EPILEPSY

REACTIONS (1)
  - CONVULSION [None]
